FAERS Safety Report 11756933 (Version 5)
Quarter: 2017Q2

REPORT INFORMATION
  Report Type: Report from Study
  Country: US (occurrence: US)
  Receive Date: 20151120
  Receipt Date: 20170622
  Transmission Date: 20170829
  Serious: No
  Sender: FDA-Public Use
  Company Number: PHEH2015US023272

PATIENT
  Sex: Female
  Weight: 65.77 kg

DRUGS (1)
  1. COSENTYX [Suspect]
     Active Substance: SECUKINUMAB
     Indication: PSORIASIS
     Dosage: UNK
     Route: 065
     Dates: start: 20150813

REACTIONS (5)
  - Fatigue [Not Recovered/Not Resolved]
  - Scar [Unknown]
  - Psoriasis [Recovered/Resolved]
  - Peripheral swelling [Unknown]
  - Ocular hyperaemia [Unknown]
